FAERS Safety Report 25653080 (Version 1)
Quarter: 2025Q3

REPORT INFORMATION
  Report Type: Spontaneous
  Country: JP (occurrence: JP)
  Receive Date: 20250807
  Receipt Date: 20250807
  Transmission Date: 20251020
  Serious: Yes (Other)
  Sender: RADIUS PHARM
  Company Number: JP-RADIUS HEALTH INC.-2024JP005912

PATIENT
  Sex: Female

DRUGS (1)
  1. ABALOPARATIDE [Suspect]
     Active Substance: ABALOPARATIDE
     Indication: Osteoporosis
     Dosage: 80 MICROGRAM, QD
     Route: 058

REACTIONS (11)
  - Cerebellar infarction [Unknown]
  - Neoplasm malignant [Unknown]
  - Nephrolithiasis [Unknown]
  - Cellulitis [Unknown]
  - Blood pressure decreased [Unknown]
  - Decreased appetite [Unknown]
  - Malaise [Unknown]
  - Constipation [Unknown]
  - Palpitations [Unknown]
  - Injection site reaction [Unknown]
  - Nausea [Unknown]
